FAERS Safety Report 22225156 (Version 1)
Quarter: 2023Q2

REPORT INFORMATION
  Report Type: Spontaneous
  Country: US (occurrence: US)
  Receive Date: 20230418
  Receipt Date: 20230418
  Transmission Date: 20230721
  Serious: Yes (Life-Threatening, Hospitalization)
  Sender: FDA-Public Use
  Company Number: US-TEVA-2023-US-2876983

PATIENT
  Age: 19 Year
  Sex: Female

DRUGS (4)
  1. NOREPINEPHRINE [Suspect]
     Active Substance: NOREPINEPHRINE
     Indication: Right ventricular dysfunction
     Dosage: DOSAGE: 0.18UG/KG/MIN
     Route: 065
  2. NOREPINEPHRINE [Suspect]
     Active Substance: NOREPINEPHRINE
     Indication: Pulmonary hypertension
  3. MILRINONE [Suspect]
     Active Substance: MILRINONE
     Indication: Right ventricular dysfunction
     Dosage: DOSAGE: 0.25UG/KG/MIN
     Route: 065
  4. MILRINONE [Suspect]
     Active Substance: MILRINONE
     Indication: Pulmonary hypertension

REACTIONS (1)
  - Drug ineffective [Unknown]
